FAERS Safety Report 5711191-4 (Version None)
Quarter: 2008Q2

REPORT INFORMATION
  Report Type: 
  Country: None (occurrence: None)
  Receive Date: 20080421
  Receipt Date: 20080414
  Transmission Date: 20081010
  Serious: Yes (Other)
  Sender: FDA-Public Use
  Company Number: FR-AVENTIS-200811395FR

PATIENT
  Age: 49 Year
  Sex: Male

DRUGS (7)
  1. ULTRACET [Suspect]
     Route: 048
     Dates: start: 20080305, end: 20080321
  2. LOVENOX [Suspect]
     Route: 058
     Dates: start: 20080224, end: 20080309
  3. BACTRIM DS [Suspect]
     Route: 048
     Dates: start: 20080305, end: 20080310
  4. ATARAX [Suspect]
     Indication: ANXIETY
     Route: 048
     Dates: start: 20080305, end: 20080321
  5. SPASFON                            /00934601/ [Concomitant]
     Dates: start: 20080305
  6. TARDYFERON                         /00023503/ [Concomitant]
     Route: 048
     Dates: start: 20080305
  7. SPAGULAX [Concomitant]
     Route: 048
     Dates: start: 20080305

REACTIONS (1)
  - PANCYTOPENIA [None]
